FAERS Safety Report 13063702 (Version 1)
Quarter: 2016Q4

REPORT INFORMATION
  Report Type: Spontaneous
  Country: US (occurrence: US)
  Receive Date: 20161227
  Receipt Date: 20161227
  Transmission Date: 20170207
  Serious: No
  Sender: FDA-Public Use
  Company Number: US-PFIZER INC-2016582782

PATIENT
  Age: 69 Year
  Sex: Male
  Weight: 78.91 kg

DRUGS (1)
  1. SUTENT [Suspect]
     Active Substance: SUNITINIB MALATE
     Indication: METASTATIC RENAL CELL CARCINOMA
     Dosage: 50 MG, CYCLIC (DAILY FOR TWO WEEKS ON + 1 WEEK OFF EVERY 3 WEEKS CYCLE)
     Route: 048
     Dates: start: 20161209

REACTIONS (3)
  - Blood pressure increased [Unknown]
  - Energy increased [Unknown]
  - Fatigue [Unknown]

NARRATIVE: CASE EVENT DATE: 20161219
